FAERS Safety Report 5264897-8 (Version None)
Quarter: 2007Q1

REPORT INFORMATION
  Report Type: 
  Country: None (occurrence: None)
  Receive Date: 20070314
  Receipt Date: 20070307
  Transmission Date: 20070707
  Serious: Yes (Death)
  Sender: FDA-Public Use
  Company Number: JP-AVENTIS-200710367JP

PATIENT
  Age: 73 Year
  Sex: Male

DRUGS (2)
  1. RILUTEK [Suspect]
     Indication: AMYOTROPHIC LATERAL SCLEROSIS
     Route: 048
     Dates: start: 20060107, end: 20061108
  2. CALSLOT [Concomitant]
     Indication: HYPERTENSION
     Route: 048
     Dates: end: 20060118

REACTIONS (2)
  - CONDITION AGGRAVATED [None]
  - DISEASE PROGRESSION [None]
